FAERS Safety Report 21110857 (Version 1)
Quarter: 2022Q3

REPORT INFORMATION
  Report Type: Spontaneous
  Country: PT (occurrence: PT)
  Receive Date: 20220721
  Receipt Date: 20220721
  Transmission Date: 20221026
  Serious: Yes (Life-Threatening, Hospitalization, Other)
  Sender: FDA-Public Use
  Company Number: PT-Indoco-000327

PATIENT
  Age: 79 Year
  Sex: Female

DRUGS (1)
  1. APIXABAN [Suspect]
     Active Substance: APIXABAN
     Indication: Atrial fibrillation
     Route: 048

REACTIONS (5)
  - Shock haemorrhagic [Recovered/Resolved]
  - Kidney rupture [Recovered/Resolved]
  - Renal haemorrhage [Recovered/Resolved]
  - Cerebral infarction [Recovering/Resolving]
  - Paresis [Recovering/Resolving]
